FAERS Safety Report 15150106 (Version 1)
Quarter: 2018Q3

REPORT INFORMATION
  Report Type: Spontaneous
  Country: PL (occurrence: PL)
  Receive Date: 20180716
  Receipt Date: 20180716
  Transmission Date: 20181010
  Serious: Yes (Hospitalization)
  Sender: FDA-Public Use
  Company Number: PL-FRESENIUS KABI-FK201807730

PATIENT
  Sex: Female
  Weight: 58 kg

DRUGS (1)
  1. PACLITAXEL (MANUFACTURER UNKNOWN) [Suspect]
     Active Substance: PACLITAXEL
     Indication: PRODUCT USED FOR UNKNOWN INDICATION
     Route: 065

REACTIONS (3)
  - Erythema [Recovering/Resolving]
  - Dyspnoea [Recovering/Resolving]
  - Dizziness [Recovering/Resolving]
